FAERS Safety Report 5579710-9 (Version None)
Quarter: 2008Q1

REPORT INFORMATION
  Report Type: 
  Country: None (occurrence: None)
  Receive Date: 20080102
  Receipt Date: 20071207
  Transmission Date: 20080703
  Serious: No
  Sender: FDA-Public Use
  Company Number: US-BOEHRINGER INGELHEIM PHARMACEUTICALS, INC.-2007-BP-25790BP

PATIENT
  Sex: Male

DRUGS (7)
  1. CATAPRES-TTS-1 [Suspect]
     Indication: HYPERTENSION
     Route: 061
     Dates: start: 19970101
  2. HYDRALAZINE [Concomitant]
     Indication: HYPERTENSION
  3. OMEPRAZOLE [Concomitant]
     Indication: GASTROOESOPHAGEAL REFLUX DISEASE
  4. LOVASTATIN [Concomitant]
     Indication: HYPERLIPIDAEMIA
  5. LASIX [Concomitant]
     Indication: HYPERTENSION
  6. AGGRENOX [Concomitant]
     Indication: TRANSIENT ISCHAEMIC ATTACK
  7. TELMISARTAN [Concomitant]
     Indication: HYPERTENSION

REACTIONS (1)
  - BLOOD PRESSURE INADEQUATELY CONTROLLED [None]
